FAERS Safety Report 4708821-2 (Version None)
Quarter: 2005Q3

REPORT INFORMATION
  Report Type: 
  Country: None (occurrence: None)
  Receive Date: 20050707
  Receipt Date: 20050623
  Transmission Date: 20060218
  Serious: Yes (Death)
  Sender: FDA-Public Use
  Company Number: DE-ABBOTT-05P-062-0303883-00

PATIENT
  Sex: Male
  Weight: 85 kg

DRUGS (10)
  1. MAVIK [Suspect]
     Indication: HYPERTENSION
     Dates: start: 19980121
  2. MAVIK [Suspect]
     Indication: MICROALBUMINURIA
  3. SUGUAN [Concomitant]
     Indication: DIABETES MELLITUS
     Route: 048
     Dates: start: 19880601
  4. ALLOPURINOL [Concomitant]
     Indication: GOUT
     Route: 048
     Dates: start: 19940101
  5. LORAZEPAM [Concomitant]
     Indication: ANXIETY
     Route: 048
     Dates: start: 19960101
  6. CLONIDINE [Concomitant]
     Indication: HYPERTENSION
     Route: 062
     Dates: start: 20021023
  7. HYDROCHLOROTHIAZIDE [Concomitant]
     Indication: HYPERTENSION
     Route: 048
     Dates: start: 20021213
  8. DOXAZOSIN MESYLATE [Concomitant]
     Indication: HYPERTENSION
     Route: 048
     Dates: start: 20040122
  9. TROMCARDIN [Concomitant]
     Indication: HYPOKALAEMIA
     Route: 048
     Dates: start: 20040715
  10. PARAFFIN SOFT [Concomitant]
     Indication: HYPERTENSION
     Route: 048
     Dates: start: 20041018

REACTIONS (2)
  - GASTRIC CANCER [None]
  - SUDDEN DEATH [None]
